FAERS Safety Report 6057205-6 (Version None)
Quarter: 2009Q1

REPORT INFORMATION
  Report Type: 
  Country: None (occurrence: None)
  Receive Date: 20090129
  Receipt Date: 20080324
  Transmission Date: 20090719
  Serious: No
  Sender: FDA-Public Use
  Company Number: A0717030A

PATIENT
  Age: 51 Year
  Sex: Female

DRUGS (4)
  1. WELLBUTRIN [Suspect]
     Indication: SMOKING CESSATION THERAPY
     Route: 048
  2. WELLBUTRIN [Suspect]
     Route: 048
  3. COMMIT [Suspect]
     Indication: SMOKING CESSATION THERAPY
     Route: 002
  4. CHANTIX [Concomitant]

REACTIONS (5)
  - DRUG INEFFECTIVE [None]
  - INTENTIONAL DRUG MISUSE [None]
  - MALAISE [None]
  - NAUSEA [None]
  - VOMITING [None]
